FAERS Safety Report 23576251 (Version 2)
Quarter: 2024Q1

REPORT INFORMATION
  Report Type: Spontaneous
  Country: DE (occurrence: DE)
  Receive Date: 20240228
  Receipt Date: 20240304
  Transmission Date: 20240410
  Serious: No
  Sender: FDA-Public Use
  Company Number: DE-ORGANON-O2402DEU002645

PATIENT
  Age: 27 Year
  Sex: Female

DRUGS (2)
  1. ETONOGESTREL [Suspect]
     Active Substance: ETONOGESTREL
     Dosage: 1 IMPLANT, (2ND IMPANT)
     Route: 059
     Dates: start: 20220303
  2. ETONOGESTREL [Concomitant]
     Active Substance: ETONOGESTREL
     Dosage: 1 DOSAGE FORM, (1ST IMPANT)
     Route: 059

REACTIONS (3)
  - Intermenstrual bleeding [Unknown]
  - Back pain [Unknown]
  - Nasopharyngitis [Recovered/Resolved]
